FAERS Safety Report 9521356 (Version 1)
Quarter: 2013Q3

REPORT INFORMATION
  Report Type: Spontaneous
  Country: US (occurrence: None)
  Receive Date: 20130911
  Receipt Date: 20130911
  Transmission Date: 20140515
  Serious: Yes (Hospitalization, Other)
  Sender: FDA-Public Use
  Company Number: DSU-2013-03974

PATIENT
  Age: 68 Year
  Sex: Male

DRUGS (4)
  1. AZOR [Suspect]
     Indication: PRODUCT USED FOR UNKNOWN INDICATION
     Route: 048
     Dates: start: 20110630, end: 20130614
  2. AMLODIPINE [Concomitant]
  3. CRESTOR [Concomitant]
  4. METOPROLOL ER [Concomitant]

REACTIONS (2)
  - Diarrhoea [None]
  - Dehydration [None]
